FAERS Safety Report 6960655-4 (Version None)
Quarter: 2010Q3

REPORT INFORMATION
  Report Type: 
  Country: None (occurrence: None)
  Receive Date: 20100901
  Receipt Date: 20100823
  Transmission Date: 20110219
  Serious: Yes (Other)
  Sender: FDA-Public Use
  Company Number: US-PFIZER INC-2010106742

PATIENT
  Sex: Male
  Weight: 79 kg

DRUGS (2)
  1. LIPITOR [Suspect]
     Indication: BLOOD CHOLESTEROL INCREASED
     Dosage: 80 MG, 1X/DAY
     Route: 048
  2. SOTALOL [Concomitant]
     Indication: BLOOD PRESSURE INCREASED
     Dosage: 80 MG, 2X/DAY

REACTIONS (2)
  - LYMPHOMA [None]
  - WEIGHT DECREASED [None]
